FAERS Safety Report 7487753-3 (Version None)
Quarter: 2011Q2

REPORT INFORMATION
  Report Type: 
  Country: None (occurrence: None)
  Receive Date: 20110518
  Receipt Date: 20110509
  Transmission Date: 20111010
  Serious: Yes (Other)
  Sender: FDA-Public Use
  Company Number: PHHY2011ZA39925

PATIENT
  Age: 84 Year
  Sex: Female

DRUGS (2)
  1. VOLTAREN [Suspect]
     Indication: ARTHRITIS
     Dosage: 200 MG, QD, DAILY AS NEEDED
  2. VOLTAREN [Suspect]
     Dosage: 100 MG, BD
     Route: 048

REACTIONS (7)
  - SKIN CHAPPED [None]
  - PAIN [None]
  - SALIVARY HYPERSECRETION [None]
  - ARTHRALGIA [None]
  - SCIATICA [None]
  - GASTROOESOPHAGEAL REFLUX DISEASE [None]
  - POLLAKIURIA [None]
